FAERS Safety Report 6534530-3 (Version None)
Quarter: 2009Q4

REPORT INFORMATION
  Report Type: 
  Country: None (occurrence: None)
  Receive Date: 20091228
  Receipt Date: 20070914
  Transmission Date: 20100525
  Serious: Yes (Other)
  Sender: FDA-Public Use
  Company Number: BDI-009724

PATIENT
  Age: 35 Year
  Sex: Female

DRUGS (1)
  1. MULTIHANCE [Suspect]
     Indication: NUCLEAR MAGNETIC RESONANCE IMAGING
     Dosage: ONCE INTRAVENOUS (NOT OTHERWISE SPECIFIED)
     Dates: start: 20070612, end: 20070612

REACTIONS (4)
  - ABDOMINAL PAIN [None]
  - NAUSEA [None]
  - PRESYNCOPE [None]
  - SKIN DISCOLOURATION [None]
